FAERS Safety Report 6380811-6 (Version None)
Quarter: 2009Q3

REPORT INFORMATION
  Report Type: 
  Country: None (occurrence: None)
  Receive Date: 20090924
  Receipt Date: 20090916
  Transmission Date: 20100115
  Serious: Yes (Other)
  Sender: FDA-Public Use
  Company Number: CIP09001331

PATIENT
  Age: 84 Year
  Sex: Female

DRUGS (6)
  1. ACTONEL [Suspect]
     Dosage: ORAL
     Route: 048
     Dates: start: 20040412
  2. PLAVIX [Suspect]
  3. SPIRIVA [Concomitant]
  4. CRESTOR [Concomitant]
  5. DIAMICRON (GLICLAZIDE) [Concomitant]
  6. ALLOPURINOL [Concomitant]

REACTIONS (1)
  - CATARACT [None]
